FAERS Safety Report 25591156 (Version 1)
Quarter: 2025Q3

REPORT INFORMATION
  Report Type: Spontaneous
  Country: US (occurrence: None)
  Receive Date: 20250722
  Receipt Date: 20250722
  Transmission Date: 20251020
  Serious: Yes (Hospitalization)
  Sender: FDA-CTU
  Company Number: None

PATIENT
  Sex: Female

DRUGS (12)
  1. PREDNISONE [Suspect]
     Active Substance: PREDNISONE
     Indication: Renal transplant
     Dosage: FREQUENCY : DAILY;?
     Route: 048
     Dates: start: 20190430
  2. CALCI UM+D3 TAB 600-800 [Concomitant]
  3. D2000 ULTRA STRENGTH [Concomitant]
  4. DUREZOL EMU 0.05?/o [Concomitant]
  5. GABAPENTIN CAP 100MG [Concomitant]
  6. GABAPENTIN [Concomitant]
     Active Substance: GABAPENTIN
  7. HIPREX [Concomitant]
     Active Substance: METHENAMINE HIPPURATE
  8. LEXAPRO TAB 10MG [Concomitant]
  9. MAG64 TAB 64MG [Concomitant]
  10. METFORMIN [Concomitant]
     Active Substance: METFORMIN HYDROCHLORIDE
  11. METFORMIN [Concomitant]
     Active Substance: METFORMIN HYDROCHLORIDE
  12. MYCOPHENOLIC ACID [Concomitant]
     Active Substance: MYCOPHENOLIC ACID

REACTIONS (2)
  - Fall [None]
  - Therapy interrupted [None]
